FAERS Safety Report 5266293-6 (Version None)
Quarter: 2007Q1

REPORT INFORMATION
  Report Type: 
  Country: None (occurrence: None)
  Receive Date: 20070315
  Receipt Date: 20070312
  Transmission Date: 20070707
  Serious: Yes (Other)
  Sender: FDA-Public Use
  Company Number: GB-AVENTIS-200710980GDDC

PATIENT
  Age: 75 Year
  Sex: Female
  Weight: 60.3 kg

DRUGS (4)
  1. ARAVA [Suspect]
     Indication: RHEUMATOID ARTHRITIS
     Route: 048
     Dates: start: 20060701, end: 20070106
  2. CALCICHEW                          /00108001/ [Concomitant]
     Dosage: DOSE: UNK
     Route: 048
  3. RELIFEX [Concomitant]
     Route: 048
  4. SULFASALAZINE [Concomitant]
     Route: 048

REACTIONS (10)
  - ACUTE SINUSITIS [None]
  - ANOREXIA [None]
  - ARTHRALGIA [None]
  - CONDITION AGGRAVATED [None]
  - DRY MOUTH [None]
  - FATIGUE [None]
  - MALAISE [None]
  - RED BLOOD CELL SEDIMENTATION RATE INCREASED [None]
  - SUDDEN HEARING LOSS [None]
  - WEIGHT DECREASED [None]
